FAERS Safety Report 13410121 (Version 4)
Quarter: 2019Q4

REPORT INFORMATION
  Report Type: Report from Study
  Country: CA (occurrence: CA)
  Receive Date: 20170406
  Receipt Date: 20191204
  Transmission Date: 20200122
  Serious: Yes (Hospitalization)
  Sender: FDA-Public Use
  Company Number: PHHY2017CA030001

PATIENT
  Sex: Male

DRUGS (3)
  1. COSENTYX [Suspect]
     Active Substance: SECUKINUMAB
     Indication: PSORIASIS
     Dosage: 300 MG, QW
     Route: 058
     Dates: start: 20161123, end: 20161221
  2. METFORMIN [Concomitant]
     Active Substance: METFORMIN HYDROCHLORIDE
     Indication: PRODUCT USED FOR UNKNOWN INDICATION
     Dosage: UNK
     Route: 065
  3. COSENTYX [Suspect]
     Active Substance: SECUKINUMAB
     Dosage: 300 MG, QMO
     Route: 058
     Dates: start: 20170121

REACTIONS (12)
  - Psoriasis [Unknown]
  - Dyspnoea [Unknown]
  - Diarrhoea [Unknown]
  - Pneumonia [Unknown]
  - Asthenia [Unknown]
  - Vomiting [Unknown]
  - Tremor [Unknown]
  - Abdominal pain upper [Unknown]
  - Immune system disorder [Unknown]
  - Fungal infection [Unknown]
  - Cough [Unknown]
  - Nasopharyngitis [Unknown]
